FAERS Safety Report 9888079 (Version 2)
Quarter: 2014Q1

REPORT INFORMATION
  Report Type: Spontaneous
  Country: FR (occurrence: FR)
  Receive Date: 20140211
  Receipt Date: 20140219
  Transmission Date: 20141002
  Serious: No
  Sender: FDA-Public Use
  Company Number: FR-MERCK-1402FRA003405

PATIENT
  Age: 62 Year
  Sex: Male

DRUGS (7)
  1. VELMETIA [Suspect]
     Indication: DIABETES MELLITUS
     Dosage: 2 DF, QD
     Route: 065
     Dates: start: 20121127, end: 20130103
  2. JANUVIA [Suspect]
     Indication: PRODUCT USED FOR UNKNOWN INDICATION
     Dosage: UNK
     Route: 065
     Dates: start: 201112
  3. LOXEN [Concomitant]
  4. SECTRAL [Concomitant]
  5. SIMVASTATIN [Concomitant]
  6. KARDEGIC [Concomitant]
  7. COVERSYL (PERINDOPRIL ARGININE) [Concomitant]

REACTIONS (2)
  - Hyperlipasaemia [Recovering/Resolving]
  - Hyperlipasaemia [Recovering/Resolving]
